FAERS Safety Report 21361029 (Version 1)
Quarter: 2022Q3

REPORT INFORMATION
  Report Type: Spontaneous
  Country: BA (occurrence: BA)
  Receive Date: 20220921
  Receipt Date: 20220921
  Transmission Date: 20221026
  Serious: Yes (Other)
  Sender: FDA-Public Use
  Company Number: BA-009507513-2209BIH006082

PATIENT
  Age: 32 Year
  Sex: Male

DRUGS (4)
  1. KEYTRUDA [Suspect]
     Active Substance: PEMBROLIZUMAB
     Dosage: FIRST CYCLE
     Dates: start: 202206
  2. KEYTRUDA [Suspect]
     Active Substance: PEMBROLIZUMAB
     Dosage: SECOND CYCLE
     Dates: start: 202207
  3. KEYTRUDA [Suspect]
     Active Substance: PEMBROLIZUMAB
     Dosage: THIRD CYCLE
     Dates: start: 2022
  4. KEYTRUDA [Suspect]
     Active Substance: PEMBROLIZUMAB
     Dosage: FOURTH CYCLE
     Dates: start: 2022

REACTIONS (2)
  - Malignant neoplasm progression [Unknown]
  - Tumour pseudoprogression [Unknown]

NARRATIVE: CASE EVENT DATE: 20220101
